FAERS Safety Report 7883607-9 (Version None)
Quarter: 2011Q4

REPORT INFORMATION
  Report Type: 
  Country: None (occurrence: None)
  Receive Date: 20111102
  Receipt Date: 20111025
  Transmission Date: 20120403
  Serious: Yes (Death)
  Sender: FDA-Public Use
  Company Number: PE-BRISTOL-MYERS SQUIBB COMPANY-16192833

PATIENT
  Age: 47 Year
  Sex: Male

DRUGS (1)
  1. DASATINIB [Suspect]
     Route: 048

REACTIONS (2)
  - ENCEPHALITIS [None]
  - HEAD INJURY [None]
